FAERS Safety Report 18667415 (Version 1)
Quarter: 2020Q4

REPORT INFORMATION
  Report Type: Spontaneous
  Country: US (occurrence: US)
  Receive Date: 20201228
  Receipt Date: 20201228
  Transmission Date: 20210114
  Serious: Yes (Other)
  Sender: FDA-Public Use
  Company Number: US-PIRAMAL PHARMA LIMITED-2020-PEL-000796

PATIENT

DRUGS (10)
  1. PROPOFOL. [Suspect]
     Active Substance: PROPOFOL
     Indication: MAINTENANCE OF ANAESTHESIA
     Dosage: 25?50 MCG/KG/MIN
     Route: 065
  2. KETAMINE [Suspect]
     Active Substance: KETAMINE
     Indication: MAINTENANCE OF ANAESTHESIA
     Dosage: 3?5 MCG/KG/MIN
     Route: 065
  3. SUFENTANIL [Suspect]
     Active Substance: SUFENTANIL
     Indication: MAINTENANCE OF ANAESTHESIA
     Dosage: 0.1?0.5 MCG/KG/HR
     Route: 065
  4. DOBUTAMINE [Concomitant]
     Active Substance: DOBUTAMINE HYDROCHLORIDE
     Indication: VASOPRESSIVE THERAPY
     Dosage: 2?4 ?G/KG/MIN FOR THE FIRST HOUR
     Route: 065
  5. KETAMINE [Suspect]
     Active Substance: KETAMINE
     Dosage: 3 MICROGRAM/KILOGRAM/MIN
     Route: 065
  6. ISOFLURANE. [Suspect]
     Active Substance: ISOFLURANE
     Indication: MAINTENANCE OF ANAESTHESIA
     Dosage: 0.8 PERCENT
  7. ISOFLURANE. [Suspect]
     Active Substance: ISOFLURANE
     Dosage: 0.5 PERCENT
  8. PROPOFOL. [Suspect]
     Active Substance: PROPOFOL
     Dosage: 25 MICROGRAM/KILOGRAM/MIN
     Route: 065
  9. SUFENTANIL [Suspect]
     Active Substance: SUFENTANIL
     Dosage: 0.1 MICROGRAM/KILOGRAM/HR
     Route: 065
  10. LIDOCAINE. [Suspect]
     Active Substance: LIDOCAINE
     Indication: MAINTENANCE OF ANAESTHESIA
     Dosage: 2 MILLIGRAM PER MIN
     Route: 065

REACTIONS (2)
  - Procedural hypotension [Unknown]
  - Pulse pressure increased [Unknown]
